FAERS Safety Report 13757035 (Version 10)
Quarter: 2018Q1

REPORT INFORMATION
  Report Type: Spontaneous
  Country: JP (occurrence: JP)
  Receive Date: 20170714
  Receipt Date: 20180219
  Transmission Date: 20180508
  Serious: Yes (Death, Hospitalization, Other)
  Sender: FDA-Public Use
  Company Number: JP-009507513-1707JPN000245J

PATIENT
  Age: 55 Year
  Sex: Male
  Weight: 66 kg

DRUGS (11)
  1. KEYTRUDA [Suspect]
     Active Substance: PEMBROLIZUMAB
     Indication: LUNG ADENOCARCINOMA STAGE IV
     Dosage: 200 MG, Q3W
     Route: 041
     Dates: start: 20170525, end: 20170525
  2. FOSAMAC TABLETS 35MG [Concomitant]
     Active Substance: ALENDRONATE SODIUM
     Dosage: UNK
     Route: 048
  3. UNISIA [Concomitant]
     Active Substance: AMLODIPINE BESYLATE\CANDESARTAN CILEXETIL
     Dosage: UNK
     Route: 048
  4. MAGMITT [Concomitant]
     Active Substance: MAGNESIUM OXIDE
     Dosage: UNK, UNKNOWN
     Route: 048
  5. BAKTAR [Concomitant]
     Active Substance: SULFAMETHOXAZOLE\TRIMETHOPRIM
     Dosage: UNK
     Route: 048
  6. LYRICA [Concomitant]
     Active Substance: PREGABALIN
     Dosage: UNK, UNKNOWN
     Route: 048
  7. PROTECADIN [Concomitant]
     Active Substance: LAFUTIDINE
     Dosage: UNK
     Route: 048
  8. CALONAL [Concomitant]
     Active Substance: ACETAMINOPHEN
     Dosage: UNK
     Route: 048
  9. PURSENNID [Concomitant]
     Active Substance: SENNOSIDES A AND B
     Dosage: UNK
     Route: 048
  10. SALINEX [Concomitant]
     Dosage: UNK
     Route: 051
  11. ALLELOCK [Concomitant]
     Active Substance: OLOPATADINE HYDROCHLORIDE
     Dosage: UNK
     Route: 048

REACTIONS (4)
  - Pneumonitis [Recovered/Resolved]
  - Malignant neoplasm progression [Fatal]
  - Paraneoplastic neurological syndrome [Unknown]
  - Diabetes insipidus [Not Recovered/Not Resolved]

NARRATIVE: CASE EVENT DATE: 201706
